FAERS Safety Report 11320783 (Version 1)
Quarter: 2015Q3

REPORT INFORMATION
  Report Type: Spontaneous
  Country: US (occurrence: US)
  Receive Date: 20150729
  Receipt Date: 20150729
  Transmission Date: 20151125
  Serious: Yes (Other)
  Sender: FDA-Public Use
  Company Number: US-PFIZER INC-2015248569

PATIENT
  Age: 67 Year
  Sex: Female
  Weight: 77.55 kg

DRUGS (5)
  1. AROMASIN [Suspect]
     Active Substance: EXEMESTANE
     Dosage: UNK
     Dates: start: 20130206, end: 20130507
  2. EVEROLIMUS [Suspect]
     Active Substance: EVEROLIMUS
     Indication: BREAST CANCER METASTATIC
     Dosage: UNK
     Dates: start: 20130206, end: 20130507
  3. AROMASIN [Suspect]
     Active Substance: EXEMESTANE
     Indication: BREAST CANCER METASTATIC
     Dosage: UNK
     Dates: start: 201107, end: 201205
  4. XGEVA [Suspect]
     Active Substance: DENOSUMAB
     Indication: BREAST CANCER METASTATIC
     Dosage: UNK
     Dates: end: 20150609
  5. FASLODEX [Suspect]
     Active Substance: FULVESTRANT
     Indication: BREAST CANCER METASTATIC
     Dosage: UNK
     Dates: start: 20120525

REACTIONS (6)
  - Drug intolerance [Unknown]
  - Condition aggravated [Unknown]
  - Chronic kidney disease [Unknown]
  - Disease progression [Unknown]
  - Breast cancer metastatic [Unknown]
  - Anaemia [Unknown]

NARRATIVE: CASE EVENT DATE: 201204
